FAERS Safety Report 6195847-8 (Version None)
Quarter: 2009Q2

REPORT INFORMATION
  Report Type: 
  Country: None (occurrence: None)
  Receive Date: 20090520
  Receipt Date: 20070816
  Transmission Date: 20091009
  Serious: Yes (Hospitalization, Other)
  Sender: FDA-Public Use
  Company Number: US-ASTRAZENECA-2006UW27829

PATIENT
  Age: 404 Month
  Sex: Female
  Weight: 102.1 kg

DRUGS (67)
  1. SEROQUEL [Suspect]
     Indication: ANXIETY
     Route: 048
     Dates: start: 20020101, end: 20040101
  2. SEROQUEL [Suspect]
     Indication: STRESS
     Route: 048
     Dates: start: 20020101, end: 20040101
  3. SEROQUEL [Suspect]
     Indication: INSOMNIA
     Route: 048
     Dates: start: 20020101, end: 20040101
  4. SEROQUEL [Suspect]
     Dosage: 25-400 MG
     Route: 048
     Dates: start: 20030318
  5. SEROQUEL [Suspect]
     Dosage: 25-400 MG
     Route: 048
     Dates: start: 20030318
  6. SEROQUEL [Suspect]
     Dosage: 25-400 MG
     Route: 048
     Dates: start: 20030318
  7. AXERT [Concomitant]
     Route: 065
  8. SYNTHROID [Concomitant]
     Indication: HYPOTHYROIDISM
     Dosage: 0.05-0.15 MG DAILY
     Route: 048
  9. FIORINAL W/CODEINE [Concomitant]
     Indication: MIGRAINE
     Dosage: ONE TO TWO EVERY 4-6 HOURS
     Route: 065
  10. SINGULAIR [Concomitant]
     Route: 048
  11. TESSALON [Concomitant]
     Dosage: 100 MG, 1-2 EVERY 8 HOURS
     Route: 048
  12. PREDNISONE [Concomitant]
     Dosage: 50 TO 5 MG, TAPERING DOSE
     Route: 065
  13. IMITREX [Concomitant]
     Indication: MIGRAINE
     Dosage: 25 MG EVERY TWO HOURS, MAXIMUM OF 200 MG PER 24 HOURS
     Route: 048
  14. ANTIVERT [Concomitant]
     Indication: VERTIGO
     Dosage: 25 MG, 1/2 TO 1 EVERY 6 HOURS
     Route: 048
  15. MIGRANAL [Concomitant]
     Indication: HEADACHE
     Dosage: 4.0 MG/ML, INHALE 1 SPRAY PER NOSTRIL
     Route: 045
  16. LEXAPRO [Concomitant]
     Route: 065
  17. FROVA [Concomitant]
     Indication: MIGRAINE
     Dosage: 2.5 MG, 1 TABLET
     Route: 048
  18. STADOL [Concomitant]
     Route: 045
  19. XOPENEX [Concomitant]
     Dosage: EVERY 4-6 HOURS
     Route: 065
  20. ENTEX PSE [Concomitant]
     Dosage: 120-600 MG, 1 TABLET TWO TIMES A DAY
     Route: 048
  21. PROAIR HFA [Concomitant]
     Dosage: 1.25 MG/3 ML NEBU, USE 3 CC TX EVERY 6 HOURS AS NEEDED
     Route: 065
  22. COMBIVENT [Concomitant]
     Dosage: 103-18 MCG/ACT AERO, 2 PUFFS EVERY 6 HOURS
     Route: 065
  23. DARVON-N [Concomitant]
     Route: 065
  24. CONCERTA [Concomitant]
     Route: 048
  25. CELEBREX [Concomitant]
     Route: 048
  26. CROMOLYN SOD INH SOLUTION [Concomitant]
     Dosage: 20 MG/2 ML, 1 VIAL PER NEBULIZER MIXED WITH ALBUTEROL EVERY 3-4 HOURS
     Route: 065
  27. DOCUSATE SODIUM [Concomitant]
     Dosage: 1 CAPSULE DAILY
     Route: 065
  28. ADVIL [Concomitant]
     Dosage: 200-800 MG
     Route: 048
  29. SKELAXIN [Concomitant]
     Route: 048
  30. SOMA [Concomitant]
     Route: 048
  31. DEPAKOTE [Concomitant]
     Indication: MIGRAINE
     Dosage: 500-2000 MG
     Route: 048
  32. HYCODAN [Concomitant]
     Dosage: 5 CC EVERY 4-6 HOURS
     Route: 048
  33. ADVAIR DISKUS 500/50 [Concomitant]
     Dosage: 500-50 MCG/DOSE MISC, ONE INHALATION TWO TIMES A DAY
     Route: 065
  34. MUCINEX [Concomitant]
     Dosage: 600 MG, 1-2 EVERY 12 HOURS
     Route: 065
  35. ZOMIG [Concomitant]
     Indication: HEADACHE
     Dosage: 5 MG EVERYDAY AS NEEDED, 5 MG 1 TABLET MAY REPEAT EVERY 2 HOURS FOR TOTAL 10 MG IN 24-HOUR PERIOD
     Route: 048
  36. TORADOL [Concomitant]
     Indication: HEADACHE
     Route: 065
  37. TORADOL [Concomitant]
     Route: 065
  38. COMPAZINE [Concomitant]
     Route: 042
  39. COMPAZINE [Concomitant]
     Dosage: 5 MG, 1-2 TABLET EVERY 8 HOURS
     Route: 065
  40. DEMEROL [Concomitant]
     Route: 065
  41. CYMBALTA [Concomitant]
     Dosage: 30-60 MG
     Route: 048
  42. LISINOPRIL [Concomitant]
     Route: 048
  43. METFORMIN HCL [Concomitant]
     Dosage: 500-1000 MG
     Route: 048
  44. NAPROXEN [Concomitant]
     Route: 048
  45. FLEXERIL [Concomitant]
     Dosage: 5-30 MG
     Route: 048
  46. WELLBUTRIN SR [Concomitant]
     Dosage: 100-450 MG
     Route: 048
  47. LORTAB [Concomitant]
     Indication: PAIN
     Dosage: 5-500 MG, 1-2 TABLET EVERY 4-6 HOURS
     Route: 048
  48. LORTAB [Concomitant]
     Dosage: 7.5,1-2 TABLET EVERY 6 HOURS
     Route: 048
  49. LORTAB [Concomitant]
     Route: 048
  50. PROTONIX [Concomitant]
     Route: 048
  51. LUNESTA [Concomitant]
     Dosage: 2-10 MG
     Route: 048
  52. LAMICTAL [Concomitant]
     Route: 065
  53. RELPAX [Concomitant]
     Indication: HEADACHE
     Dosage: 40 MG, 1 TABLET AND REPEAT AFTER 2 HOURS FOR A MAXIMUM OF 80 MG IN 24-HOUR PERIOD
     Route: 048
  54. PROZAC [Concomitant]
     Indication: DEPRESSION
     Dosage: 20-60 MG
     Route: 048
  55. PROZAC [Concomitant]
     Dosage: 90 MG A WEEK
     Route: 048
  56. AMBIEN [Concomitant]
     Indication: INSOMNIA
     Route: 048
  57. PAXIL [Concomitant]
     Dosage: 20-60 MG
     Route: 048
  58. ATIVAN [Concomitant]
     Route: 065
  59. PYRIDIUM [Concomitant]
     Route: 048
  60. XANAX [Concomitant]
     Route: 065
  61. ZYRTEC [Concomitant]
     Route: 065
  62. TRAZODONE HCL [Concomitant]
     Dosage: 100-200 MG
     Route: 048
  63. MACRODANTIN [Concomitant]
     Route: 065
  64. TYLENOL W/ CODEINE NO. 3 [Concomitant]
     Indication: PAIN
     Dosage: 1-2 EVERY 6 HOURS
     Route: 048
  65. TOPAMAX [Concomitant]
     Route: 048
  66. PROVERA [Concomitant]
     Route: 065
  67. MIRALAX [Concomitant]
     Dosage: A FEW PRUNES PER DAY , 1 CAPFUL EVERYDAY
     Route: 065

REACTIONS (36)
  - ADJUSTMENT DISORDER [None]
  - BRAIN NEOPLASM [None]
  - CANDIDIASIS [None]
  - CHOLELITHIASIS [None]
  - CONSTIPATION [None]
  - DEPENDENT PERSONALITY DISORDER [None]
  - DIABETES MELLITUS [None]
  - DRUG ABUSE [None]
  - DYSTHYMIC DISORDER [None]
  - DYSURIA [None]
  - GLUCOSE TOLERANCE IMPAIRED [None]
  - HAEMATURIA [None]
  - HAEMORRHAGIC OVARIAN CYST [None]
  - HOMICIDAL IDEATION [None]
  - HYPERTENSION [None]
  - INSOMNIA [None]
  - MENORRHAGIA [None]
  - NAUSEA [None]
  - OBESITY [None]
  - OSTEOARTHRITIS [None]
  - OTITIS MEDIA [None]
  - OVARIAN CYST [None]
  - PATELLOFEMORAL PAIN SYNDROME [None]
  - PELVIC PAIN [None]
  - PHARYNGITIS [None]
  - PNEUMONIA [None]
  - POST-TRAUMATIC STRESS DISORDER [None]
  - RIB FRACTURE [None]
  - SUICIDAL IDEATION [None]
  - TREMOR [None]
  - UTERINE POLYP [None]
  - VAGINAL HAEMORRHAGE [None]
  - VERTIGO [None]
  - VIRAL INFECTION [None]
  - VULVAL DISORDER [None]
  - WEIGHT INCREASED [None]
